FAERS Safety Report 12051326 (Version 1)
Quarter: 2016Q1

REPORT INFORMATION
  Report Type: Report from Study
  Country: US (occurrence: US)
  Receive Date: 20160209
  Receipt Date: 20160209
  Transmission Date: 20160526
  Serious: No
  Sender: FDA-Public Use
  Company Number: US-ABBVIE-15P-163-1436119-00

PATIENT
  Sex: Male

DRUGS (4)
  1. PREDNISONE. [Concomitant]
     Active Substance: PREDNISONE
     Indication: PRODUCT USED FOR UNKNOWN INDICATION
     Route: 048
     Dates: start: 20150414
  2. IRON [Concomitant]
     Active Substance: IRON
     Indication: PRODUCT USED FOR UNKNOWN INDICATION
     Route: 048
     Dates: start: 20150818
  3. VITAMIN A [Concomitant]
     Active Substance: VITAMIN A
     Indication: PRODUCT USED FOR UNKNOWN INDICATION
     Route: 048
     Dates: start: 20150818
  4. HUMIRA [Suspect]
     Active Substance: ADALIMUMAB
     Indication: CROHN^S DISEASE
     Route: 065
     Dates: start: 20150325

REACTIONS (3)
  - Diarrhoea [Unknown]
  - Dyspepsia [Unknown]
  - Drug dose omission [Unknown]

NARRATIVE: CASE EVENT DATE: 2015
